FAERS Safety Report 10044165 (Version 2)
Quarter: 2014Q2

REPORT INFORMATION
  Report Type: Spontaneous
  Country: US (occurrence: US)
  Receive Date: 20140328
  Receipt Date: 20140402
  Transmission Date: 20141212
  Serious: Yes (Death, Hospitalization, Other)
  Sender: FDA-Public Use
  Company Number: US-009507513-1403USA011572

PATIENT
  Age: 73 Year
  Sex: Male

DRUGS (5)
  1. VYTORIN [Suspect]
     Indication: BLOOD CHOLESTEROL INCREASED
     Dosage: TABLET 10/40 MG 1 UNIT OF USE BOTTLE OF 90
     Route: 048
     Dates: end: 20140317
  2. LYRICA [Concomitant]
  3. LOPID [Concomitant]
  4. AMARYL [Concomitant]
  5. PRILOSEC [Concomitant]
     Dosage: UNK

REACTIONS (2)
  - Myocardial infarction [Fatal]
  - Hospitalisation [Unknown]
